FAERS Safety Report 7828077-1 (Version None)
Quarter: 2011Q4

REPORT INFORMATION
  Report Type: 
  Country: None (occurrence: None)
  Receive Date: 20111020
  Receipt Date: 20111019
  Transmission Date: 20120403
  Serious: Yes (Hospitalization)
  Sender: FDA-Public Use
  Company Number: KR-BAYER-2011-100552

PATIENT
  Age: 75 Year
  Sex: Male

DRUGS (3)
  1. NEXAVAR [Suspect]
     Indication: HEPATIC NEOPLASM MALIGNANT
     Dosage: 800 MG, UNK
     Dates: start: 20110901, end: 20110901
  2. NEXAVAR [Suspect]
     Dosage: 400 MG, UNK
     Dates: start: 20111001, end: 20111001
  3. NEXAVAR [Suspect]
     Dosage: 400 MG, UNK
     Dates: start: 20111001, end: 20111001

REACTIONS (10)
  - OEDEMA PERIPHERAL [None]
  - HAEMATEMESIS [None]
  - ABDOMINAL PAIN [None]
  - CEREBRAL HAEMORRHAGE [None]
  - DELIRIUM [None]
  - DIARRHOEA [None]
  - GASTROINTESTINAL HAEMORRHAGE [None]
  - RESPIRATORY TRACT HAEMORRHAGE [None]
  - DIZZINESS [None]
  - LOCALISED OEDEMA [None]
